FAERS Safety Report 6333263-6 (Version None)
Quarter: 2009Q3

REPORT INFORMATION
  Report Type: 
  Country: None (occurrence: None)
  Receive Date: 20090828
  Receipt Date: 20090819
  Transmission Date: 20100115
  Serious: Yes (Other)
  Sender: FDA-Public Use
  Company Number: US-PFIZER INC-2009257746

PATIENT

DRUGS (5)
  1. GEODON [Suspect]
     Dosage: 160 MG
  2. ZONEGRAN [Interacting]
     Dosage: 800 MG, UNK
  3. FELBATOL [Interacting]
     Dosage: 3600 MG, UNK
  4. VIGABATRIN [Interacting]
     Dosage: 4000 MG, UNK
  5. CYMBALTA [Interacting]
     Dosage: 120 MG, UNK

REACTIONS (2)
  - CONVULSION [None]
  - DRUG INTERACTION [None]
